FAERS Safety Report 6156265-1 (Version None)
Quarter: 2009Q2

REPORT INFORMATION
  Report Type: 
  Country: None (occurrence: None)
  Receive Date: 20090413
  Receipt Date: 20090413
  Transmission Date: 20091009
  Serious: Yes (Other)
  Sender: FDA-Public Use
  Company Number: None

PATIENT
  Age: 56 Year
  Sex: Female
  Weight: 53.0709 kg

DRUGS (1)
  1. OMEPRAZOLE [Suspect]
     Indication: GASTRITIS
     Dosage: 1 DAILY PO
     Route: 048
     Dates: start: 20090303, end: 20090402

REACTIONS (2)
  - DYSPEPSIA [None]
  - REBOUND EFFECT [None]
